FAERS Safety Report 8837183 (Version 2)
Quarter: 2012Q4

REPORT INFORMATION
  Report Type: 
  Country: GB (occurrence: GB)
  Receive Date: 20121011
  Receipt Date: 20121031
  Transmission Date: 20130627
  Serious: Yes (Death, Life-Threatening, Other)
  Sender: FDA-Public Use
  Company Number: GB-ROCHE-1144511

PATIENT
  Sex: Female

DRUGS (3)
  1. RITUXIMAB [Suspect]
     Indication: RHEUMATOID ARTHRITIS
     Dosage: 2 weeks
     Route: 042
  2. METHOTREXATE [Concomitant]
     Indication: RHEUMATOID ARTHRITIS
     Dosage: week
     Route: 048
  3. BISOPROLOL [Concomitant]
     Indication: BLOOD PRESSURE
     Route: 065
     Dates: end: 20100806

REACTIONS (4)
  - Bronchopneumonia [Fatal]
  - Lymphangiosis carcinomatosa [Unknown]
  - Breast cancer metastatic [Unknown]
  - Breast cancer recurrent [Unknown]
